FAERS Safety Report 13906587 (Version 3)
Quarter: 2017Q3

REPORT INFORMATION
  Report Type: Spontaneous
  Country: US (occurrence: US)
  Receive Date: 20170825
  Receipt Date: 20170831
  Transmission Date: 20171127
  Serious: No
  Sender: FDA-Public Use
  Company Number: US-SUNOVION-2016SUN003508

PATIENT

DRUGS (4)
  1. CLONAZEPAM. [Suspect]
     Active Substance: CLONAZEPAM
  2. LITHIUM. [Concomitant]
     Active Substance: LITHIUM
     Indication: BIPOLAR I DISORDER
  3. MARIJUANA [Suspect]
     Active Substance: CANNABIS SATIVA SUBSP. INDICA TOP
  4. LATUDA [Suspect]
     Active Substance: LURASIDONE HYDROCHLORIDE
     Indication: BIPOLAR I DISORDER
     Dosage: UNK
     Route: 048

REACTIONS (7)
  - Drug interaction [Unknown]
  - Depressed mood [Unknown]
  - Psychotic disorder [Unknown]
  - Anger [Unknown]
  - Intentional self-injury [Unknown]
  - Sedation [Unknown]
  - Dizziness [Unknown]
